FAERS Safety Report 5703080-6 (Version None)
Quarter: 2008Q2

REPORT INFORMATION
  Report Type: 
  Country: None (occurrence: None)
  Receive Date: 20080411
  Receipt Date: 20080401
  Transmission Date: 20081010
  Serious: Yes (Other)
  Sender: FDA-Public Use
  Company Number: BE-PFIZER INC-2007012538

PATIENT
  Sex: Male
  Weight: 66.5 kg

DRUGS (1)
  1. MARAVIROC [Suspect]
     Indication: HIV TEST POSITIVE
     Route: 048

REACTIONS (1)
  - RECTAL CANCER [None]
